FAERS Safety Report 6505666-8 (Version None)
Quarter: 2009Q4

REPORT INFORMATION
  Report Type: 
  Country: None (occurrence: None)
  Receive Date: 20091218
  Receipt Date: 20091209
  Transmission Date: 20100525
  Serious: Yes (Hospitalization)
  Sender: FDA-Public Use
  Company Number: A0802574A

PATIENT
  Sex: Female
  Weight: 52 kg

DRUGS (4)
  1. PLACEBO [Suspect]
     Indication: THROMBOCYTOPENIA
     Route: 048
     Dates: start: 20080825, end: 20090720
  2. PEG-INTRON [Suspect]
     Route: 058
     Dates: start: 20080825, end: 20090720
  3. REBETOL [Suspect]
     Route: 048
     Dates: start: 20080825, end: 20090720
  4. ELTROMBOPAG [Suspect]
     Indication: THROMBOCYTOPENIA
     Dosage: 25MG PER DAY
     Route: 048
     Dates: start: 20080806, end: 20080825

REACTIONS (3)
  - AMYLOIDOSIS [None]
  - PNEUMONIA [None]
  - PYREXIA [None]
